FAERS Safety Report 16821257 (Version 2)
Quarter: 2019Q4

REPORT INFORMATION
  Report Type: Report from Study
  Country: BE (occurrence: BE)
  Receive Date: 20190918
  Receipt Date: 20191112
  Transmission Date: 20200122
  Serious: Yes (Hospitalization, Other)
  Sender: FDA-Public Use
  Company Number: BE-ASPEN-GLO2019BE009540

PATIENT
  Weight: 58 kg

DRUGS (7)
  1. REVLIMID [Suspect]
     Active Substance: LENALIDOMIDE
     Dosage: 15 MG. 315 MG EVERY 28 DAYS
     Route: 048
     Dates: start: 20190201
  2. REVLIMID [Suspect]
     Active Substance: LENALIDOMIDE
     Dosage: 25 MG. 525 MG, 1 DOSE 28 DAYS
     Route: 048
     Dates: start: 2019
  3. FORZATEN/HCT [Concomitant]
     Active Substance: AMLODIPINE BESYLATE\HYDROCHLOROTHIAZIDE\OLMESARTAN MEDOXOMIL
     Indication: PROPHYLAXIS
     Dosage: COMP 40-5-12.5 MG
     Route: 065
  4. REVLIMID [Suspect]
     Active Substance: LENALIDOMIDE
     Indication: PLASMA CELL MYELOMA
     Dosage: 25 MG. 525 MG, 1 DOSE 28 DAYS
     Route: 048
     Dates: start: 20181214
  5. ASAFLOW [Concomitant]
     Active Substance: ASPIRIN
     Indication: PROPHYLAXIS
     Dosage: 80 MG, QD
     Route: 065
     Dates: start: 20181213
  6. MOLAXOLE [Concomitant]
     Active Substance: POLYETHYLENE GLYCOL 3350\POTASSIUM CHLORIDE\SODIUM BICARBONATE\SODIUM CHLORIDE
     Indication: CONSTIPATION PROPHYLAXIS
     Dosage: 13, 8 G
     Route: 065
     Dates: start: 20190111
  7. DEXAMETHASONE. [Suspect]
     Active Substance: DEXAMETHASONE
     Indication: PLASMA CELL MYELOMA
     Dosage: 40 MILLIGRAM WEEKLY
     Route: 065
     Dates: start: 20181214

REACTIONS (2)
  - Hyponatraemia [Recovered/Resolved]
  - Cardiac failure congestive [Recovered/Resolved]

NARRATIVE: CASE EVENT DATE: 20181223
